FAERS Safety Report 5163148-2 (Version None)
Quarter: 2006Q4

REPORT INFORMATION
  Report Type: 
  Country: None (occurrence: None)
  Receive Date: 20061204
  Receipt Date: 20061123
  Transmission Date: 20070319
  Serious: Yes (Hospitalization)
  Sender: FDA-Public Use
  Company Number: FR-JNJFOC-20061005861

PATIENT
  Sex: Female

DRUGS (5)
  1. REMINYL [Suspect]
     Route: 048
  2. REMINYL [Suspect]
     Indication: DEMENTIA ALZHEIMER'S TYPE
     Route: 048
  3. EBIXA [Concomitant]
     Indication: DEMENTIA ALZHEIMER'S TYPE
  4. TANAKAN [Concomitant]
     Indication: DEMENTIA ALZHEIMER'S TYPE
  5. ALPHA-TOCOPHEROL [Concomitant]
     Indication: DEMENTIA ALZHEIMER'S TYPE

REACTIONS (1)
  - PULMONARY EMBOLISM [None]
